FAERS Safety Report 23265083 (Version 5)
Quarter: 2024Q2

REPORT INFORMATION
  Report Type: Spontaneous
  Country: AR (occurrence: AR)
  Receive Date: 20231206
  Receipt Date: 20240402
  Transmission Date: 20240716
  Serious: Yes (Hospitalization, Other)
  Sender: FDA-Public Use
  Company Number: AR-GLAXOSMITHKLINE-AR2023AMR074481

PATIENT

DRUGS (1)
  1. BENLYSTA [Suspect]
     Active Substance: BELIMUMAB
     Indication: Systemic lupus erythematosus
     Dosage: 200 MG/ML (EVERY 7 DAYS)
     Route: 058
     Dates: start: 20221110

REACTIONS (17)
  - Acute respiratory failure [Recovered/Resolved]
  - Ear congestion [Unknown]
  - Hypoacusis [Unknown]
  - Laboratory test abnormal [Unknown]
  - Blood parathyroid hormone increased [Unknown]
  - Arthralgia [Unknown]
  - Administration site pain [Recovered/Resolved]
  - Arthralgia [Recovered/Resolved]
  - Feeling cold [Unknown]
  - Feeling abnormal [Recovered/Resolved]
  - Bone pain [Unknown]
  - Breast mass [Not Recovered/Not Resolved]
  - Eye disorder [Not Recovered/Not Resolved]
  - Lymphadenopathy [Not Recovered/Not Resolved]
  - Injection site erythema [Not Recovered/Not Resolved]
  - Product administration error [Unknown]
  - Exposure during pregnancy [Unknown]

NARRATIVE: CASE EVENT DATE: 20230701
